FAERS Safety Report 16724280 (Version 6)
Quarter: 2021Q4

REPORT INFORMATION
  Report Type: Spontaneous
  Country: US (occurrence: US)
  Receive Date: 20190821
  Receipt Date: 20211122
  Transmission Date: 20220303
  Serious: Yes (Other)
  Sender: FDA-Public Use
  Company Number: US-PFIZER INC-2019335732

PATIENT
  Age: 44 Year
  Sex: Male

DRUGS (2)
  1. LYRICA [Suspect]
     Active Substance: PREGABALIN
     Indication: Pain
     Dosage: 150 MG, 3X/DAY
     Route: 048
  2. LYRICA [Suspect]
     Active Substance: PREGABALIN
     Dosage: 600 MG, DAILY (1 CAP IN MORNING, 1 CAP IN AFTERNOON, 2 CAPS AT NIGHT/BEDTIME AS DIRECTED BY MD)
     Route: 048

REACTIONS (4)
  - Skull fracture [Unknown]
  - Fall [Unknown]
  - Amnesia [Unknown]
  - Intentional product misuse [Unknown]
